FAERS Safety Report 17433072 (Version 3)
Quarter: 2020Q1

REPORT INFORMATION
  Report Type: Spontaneous
  Country: FI (occurrence: FI)
  Receive Date: 20200219
  Receipt Date: 20200318
  Transmission Date: 20200409
  Serious: Yes (Other)
  Sender: FDA-Public Use
  Company Number: FI-009507513-2002FIN004864

PATIENT
  Sex: Female

DRUGS (3)
  1. SINEMET DEPOT [Suspect]
     Active Substance: CARBIDOPA\LEVODOPA
     Dosage: HALVED THE TABLET, UNK
     Route: 048
  2. SINEMET DEPOT [Suspect]
     Active Substance: CARBIDOPA\LEVODOPA
     Indication: PARKINSON^S DISEASE
     Dosage: IN 2004-2005, 200 MILLIGRAM
     Route: 048
  3. MADOPAR [Concomitant]
     Active Substance: BENSERAZIDE HYDROCHLORIDE\LEVODOPA
     Indication: PARKINSON^S DISEASE
     Dosage: UNK

REACTIONS (11)
  - Inflammation [Unknown]
  - Therapeutic response shortened [Not Recovered/Not Resolved]
  - Pruritus [Unknown]
  - Product availability issue [Unknown]
  - Back pain [Unknown]
  - Abdominal pain [Recovering/Resolving]
  - Fall [Unknown]
  - Dyskinesia [Unknown]
  - Hip fracture [Unknown]
  - Wrong technique in product usage process [Unknown]
  - Drug dependence [Unknown]

NARRATIVE: CASE EVENT DATE: 2008
